FAERS Safety Report 7940285-8 (Version None)
Quarter: 2011Q4

REPORT INFORMATION
  Report Type: 
  Country: None (occurrence: None)
  Receive Date: 20111126
  Receipt Date: 20110925
  Transmission Date: 20120403
  Serious: No
  Sender: FDA-Public Use
  Company Number: US-BAYER-2011-093585

PATIENT
  Sex: Female

DRUGS (3)
  1. ALEVE (CAPLET) [Suspect]
     Dosage: UNK
     Dates: start: 20100327
  2. CHOLESTEROL- AND TRIGLYCERIDE REDUCERS [Concomitant]
     Indication: BURSITIS
  3. ANTIHYPERTENSIVES [Concomitant]

REACTIONS (1)
  - NO ADVERSE EVENT [None]
